FAERS Safety Report 10356233 (Version 1)
Quarter: 2014Q3

REPORT INFORMATION
  Report Type: Spontaneous
  Country: US (occurrence: US)
  Receive Date: 20140801
  Receipt Date: 20140801
  Transmission Date: 20150326
  Serious: No
  Sender: FDA-Public Use
  Company Number: US-009507513-1407USA010311

PATIENT
  Age: 23 Year
  Sex: Female
  Weight: 77.98 kg

DRUGS (1)
  1. NEXPLANON [Suspect]
     Active Substance: ETONOGESTREL
     Indication: CONTRACEPTION
     Dosage: DOSE/FREQUENCY: ONE ROD ONCE
     Dates: start: 20120828

REACTIONS (9)
  - Coital bleeding [Unknown]
  - Weight increased [Unknown]
  - Amenorrhoea [Unknown]
  - Muscle spasms [Unknown]
  - Menstruation irregular [Unknown]
  - Polymenorrhoea [Unknown]
  - Metrorrhagia [Unknown]
  - Implant site pain [Unknown]
  - Implant site pruritus [Unknown]

NARRATIVE: CASE EVENT DATE: 2014
